FAERS Safety Report 4987767-9 (Version None)
Quarter: 2006Q2

REPORT INFORMATION
  Report Type: 
  Country: None (occurrence: None)
  Receive Date: 20060428
  Receipt Date: 20060428
  Transmission Date: 20061013
  Serious: Yes (Other)
  Sender: FDA-Public Use
  Company Number: None

PATIENT
  Sex: Female
  Weight: 63.5036 kg

DRUGS (2)
  1. PAXIL [Suspect]
     Indication: ANXIETY
     Dosage: 40 MG-10 MG ONCE DAILY PO
     Route: 048
     Dates: start: 20000101, end: 20060501
  2. PAXIL [Suspect]
     Indication: DEPRESSION
     Dosage: 40 MG-10 MG ONCE DAILY PO
     Route: 048
     Dates: start: 20000101, end: 20060501

REACTIONS (15)
  - ABDOMINAL PAIN UPPER [None]
  - AMNESIA [None]
  - ANGER [None]
  - DISTURBANCE IN ATTENTION [None]
  - DRUG DEPENDENCE [None]
  - DRUG WITHDRAWAL SYNDROME [None]
  - DYSARTHRIA [None]
  - FEELING ABNORMAL [None]
  - FEELING DRUNK [None]
  - GAIT DISTURBANCE [None]
  - HEADACHE [None]
  - IRRITABILITY [None]
  - MOTION SICKNESS [None]
  - PANIC ATTACK [None]
  - VISUAL ACUITY REDUCED [None]
